FAERS Safety Report 15372115 (Version 1)
Quarter: 2018Q3

REPORT INFORMATION
  Report Type: Spontaneous
  Country: JP (occurrence: JP)
  Receive Date: 20180911
  Receipt Date: 20180911
  Transmission Date: 20181010
  Serious: Yes (Death, Other)
  Sender: FDA-Public Use
  Company Number: JP-009507513-1809JPN000698J

PATIENT
  Age: 88 Year
  Sex: Female

DRUGS (1)
  1. ZINPLAVA [Suspect]
     Active Substance: BEZLOTOXUMAB
     Indication: INFECTION PROPHYLAXIS
     Dosage: 420 MG, UNK
     Route: 041
     Dates: start: 20180828, end: 20180828

REACTIONS (2)
  - Blood pressure decreased [Unknown]
  - Death [Fatal]
